FAERS Safety Report 19430707 (Version 1)
Quarter: 2021Q2

REPORT INFORMATION
  Report Type: Spontaneous
  Country: JP (occurrence: JP)
  Receive Date: 20210617
  Receipt Date: 20210617
  Transmission Date: 20210717
  Serious: Yes (Hospitalization)
  Sender: FDA-Public Use
  Company Number: JP-ASTRAZENECA-2021A532350

PATIENT
  Age: 80 Year
  Sex: Male
  Weight: 54 kg

DRUGS (19)
  1. SEROQUEL [Suspect]
     Active Substance: QUETIAPINE FUMARATE
     Indication: SCHIZOPHRENIA
     Route: 048
     Dates: end: 20210112
  2. RISPERIDONE ACCORD [Suspect]
     Active Substance: RISPERIDONE
     Indication: SCHIZOPHRENIA
     Dosage: 3.0MG UNKNOWN
     Route: 048
     Dates: start: 20210120, end: 20210126
  3. NORADRENALINE [Concomitant]
     Active Substance: NOREPINEPHRINE
     Indication: HYPOTENSION
     Dosage: UNK UNK, UNKNOWN FREQ.
     Route: 065
     Dates: start: 20210110
  4. NORADRENALINE [Concomitant]
     Active Substance: NOREPINEPHRINE
     Indication: BRADYCARDIA
     Dosage: UNK UNK, UNKNOWN FREQ.
     Route: 065
     Dates: start: 20210110
  5. AMITIZA [Concomitant]
     Active Substance: LUBIPROSTONE
     Indication: PRODUCT USED FOR UNKNOWN INDICATION
     Dosage: UNK UNK, UNKNOWN FREQ.
     Route: 065
  6. ATROPINE. [Concomitant]
     Active Substance: ATROPINE
     Indication: HYPOTENSION
     Dosage: UNK UNK, UNKNOWN FREQ.
     Route: 065
     Dates: start: 20210110
  7. LASIX [Concomitant]
     Active Substance: FUROSEMIDE
     Indication: PRODUCT USED FOR UNKNOWN INDICATION
     Dosage: UNK UNK, UNKNOWN FREQ.
     Route: 065
  8. MAGNESIUM OXIDE MYLAN [Concomitant]
     Active Substance: MAGNESIUM OXIDE
     Indication: PRODUCT USED FOR UNKNOWN INDICATION
     Dosage: UNK UNK, UNKNOWN FREQ.
     Route: 065
  9. DAIKENCHUTO [Concomitant]
     Active Substance: HERBALS
     Indication: PRODUCT USED FOR UNKNOWN INDICATION
     Dosage: UNK UNK, UNKNOWN FREQ.
     Route: 065
  10. ATROPINE. [Concomitant]
     Active Substance: ATROPINE
     Indication: BRADYCARDIA
     Dosage: UNK UNK, UNKNOWN FREQ.
     Route: 065
     Dates: start: 20210110
  11. AMLODIPINE [Concomitant]
     Active Substance: AMLODIPINE BESYLATE
     Indication: PRODUCT USED FOR UNKNOWN INDICATION
     Dosage: UNK UNK, UNKNOWN FREQ.
     Route: 065
  12. SENNOSIDE [Concomitant]
     Active Substance: SENNOSIDES
     Indication: PRODUCT USED FOR UNKNOWN INDICATION
     Dosage: UNK UNK, UNKNOWN FREQ.
     Route: 065
  13. RISPERIDONE ACCORD [Suspect]
     Active Substance: RISPERIDONE
     Indication: SCHIZOPHRENIA
     Route: 048
  14. RISPERIDONE ACCORD [Suspect]
     Active Substance: RISPERIDONE
     Indication: SCHIZOPHRENIA
     Dosage: 4.0MG UNKNOWN
     Route: 048
     Dates: start: 20210112
  15. RISPERIDONE ACCORD [Suspect]
     Active Substance: RISPERIDONE
     Indication: SCHIZOPHRENIA
     Dosage: 3.0MG UNKNOWN
     Route: 048
     Dates: start: 20210120, end: 20210126
  16. THYRADIN S [Concomitant]
     Active Substance: LEVOTHYROXINE SODIUM
     Indication: PRODUCT USED FOR UNKNOWN INDICATION
     Dosage: UNK UNK, UNKNOWN FREQ.
     Route: 065
  17. BENZALIN [Concomitant]
     Indication: PRODUCT USED FOR UNKNOWN INDICATION
     Dosage: UNK UNK, UNKNOWN FREQ.
     Route: 065
  18. RISPERIDONE ACCORD [Suspect]
     Active Substance: RISPERIDONE
     Indication: SCHIZOPHRENIA
     Dosage: 4.0MG UNKNOWN
     Route: 048
     Dates: start: 20210112
  19. SYMMETREL [Concomitant]
     Active Substance: AMANTADINE HYDROCHLORIDE
     Indication: PRODUCT USED FOR UNKNOWN INDICATION
     Dosage: UNK UNK, UNKNOWN FREQ.
     Route: 065

REACTIONS (1)
  - Hypoglycaemia [Recovered/Resolved]

NARRATIVE: CASE EVENT DATE: 20210110
